FAERS Safety Report 4992350-5 (Version None)
Quarter: 2006Q2

REPORT INFORMATION
  Report Type: 
  Country: None (occurrence: None)
  Receive Date: 20060502
  Receipt Date: 20060424
  Transmission Date: 20061013
  Serious: Yes (Death, Hospitalization)
  Sender: FDA-Public Use
  Company Number: 163-20785-06040127

PATIENT
  Age: 74 Year
  Sex: Male

DRUGS (2)
  1. THALOMID [Suspect]
     Indication: MULTIPLE MYELOMA
     Dosage: 300 MG, QD, ORAL
     Route: 048
     Dates: start: 20021218, end: 20060315
  2. DOXIL [Suspect]
     Indication: MULTIPLE MYELOMA
     Dosage: 70 MG, DAILY, INTRAVENOUS
     Route: 042
     Dates: start: 20060321, end: 20060321

REACTIONS (2)
  - STAPHYLOCOCCAL SEPSIS [None]
  - WHITE BLOOD CELL COUNT DECREASED [None]
